FAERS Safety Report 25023400 (Version 3)
Quarter: 2025Q1

REPORT INFORMATION
  Report Type: Spontaneous
  Country: US (occurrence: US)
  Receive Date: 20250228
  Receipt Date: 20250324
  Transmission Date: 20250409
  Serious: Yes (Hospitalization, Other)
  Sender: UCB
  Company Number: US-UCBSA-2024056705

PATIENT
  Age: 67 Year
  Sex: Female

DRUGS (3)
  1. KEPPRA [Suspect]
     Active Substance: LEVETIRACETAM
     Indication: Seizure
  2. BRIVIACT [Suspect]
     Active Substance: BRIVARACETAM
     Indication: Seizure
     Dosage: 50 MILLIGRAM, 2X/DAY (BID)
     Dates: start: 202411
  3. BRIVIACT [Suspect]
     Active Substance: BRIVARACETAM
     Dosage: 75 MILLIGRAM, 2X/DAY (BID)

REACTIONS (4)
  - Seizure [Unknown]
  - Irritability [Not Recovered/Not Resolved]
  - Anger [Not Recovered/Not Resolved]
  - Anxiety [Not Recovered/Not Resolved]

NARRATIVE: CASE EVENT DATE: 20250217
